FAERS Safety Report 15373113 (Version 3)
Quarter: 2019Q2

REPORT INFORMATION
  Report Type: Spontaneous
  Country: US (occurrence: US)
  Receive Date: 20180912
  Receipt Date: 20190625
  Transmission Date: 20190711
  Serious: Yes (Other)
  Sender: FDA-Public Use
  Company Number: US-ASTRAZENECA-2018SF12431

PATIENT
  Age: 17875 Day
  Sex: Male
  Weight: 86.2 kg

DRUGS (33)
  1. CLARITHROMYCIN. [Concomitant]
     Active Substance: CLARITHROMYCIN
  2. NITROSTAT [Concomitant]
     Active Substance: NITROGLYCERIN
  3. NEXIUM [Suspect]
     Active Substance: ESOMEPRAZOLE MAGNESIUM
     Indication: GASTROOESOPHAGEAL REFLUX DISEASE
     Route: 048
     Dates: start: 20110418
  4. NEXIUM 24HR [Suspect]
     Active Substance: ESOMEPRAZOLE MAGNESIUM
     Route: 048
  5. TAGAMET [Concomitant]
     Active Substance: CIMETIDINE
  6. PREDNISOLONE. [Concomitant]
     Active Substance: PREDNISOLONE
  7. CLARITHROMYCIN. [Concomitant]
     Active Substance: CLARITHROMYCIN
  8. MUPIROCIN. [Concomitant]
     Active Substance: MUPIROCIN
  9. NEXIUM [Suspect]
     Active Substance: ESOMEPRAZOLE MAGNESIUM
     Indication: GASTROOESOPHAGEAL REFLUX DISEASE
     Route: 048
     Dates: start: 2000, end: 2015
  10. PRILOSEC OTC [Suspect]
     Active Substance: OMEPRAZOLE MAGNESIUM
     Indication: GASTROOESOPHAGEAL REFLUX DISEASE
     Route: 048
  11. ZYRTEC [Concomitant]
     Active Substance: CETIRIZINE HYDROCHLORIDE
  12. PLAVIX [Concomitant]
     Active Substance: CLOPIDOGREL BISULFATE
  13. LORAZEPAM. [Concomitant]
     Active Substance: LORAZEPAM
  14. NEXIUM [Suspect]
     Active Substance: ESOMEPRAZOLE MAGNESIUM
     Indication: GASTROOESOPHAGEAL REFLUX DISEASE
     Route: 048
     Dates: start: 20110119, end: 20130908
  15. PREVACID 24 HR [Suspect]
     Active Substance: LANSOPRAZOLE
     Indication: GASTROOESOPHAGEAL REFLUX DISEASE
     Route: 065
  16. BACTROBAN [Concomitant]
     Active Substance: MUPIROCIN\MUPIROCIN CALCIUM
  17. NOVOLOG [Concomitant]
     Active Substance: INSULIN ASPART
  18. SOLOSTAR [Concomitant]
     Active Substance: DEVICE
  19. NEXIUM [Suspect]
     Active Substance: ESOMEPRAZOLE MAGNESIUM
     Indication: GASTROOESOPHAGEAL REFLUX DISEASE
     Route: 048
     Dates: start: 20130511
  20. LIPITOR [Concomitant]
     Active Substance: ATORVASTATIN CALCIUM
  21. RENAGEL [Concomitant]
     Active Substance: SEVELAMER HYDROCHLORIDE
  22. MUPIROCIN. [Concomitant]
     Active Substance: MUPIROCIN
  23. PROTONIX [Suspect]
     Active Substance: PANTOPRAZOLE SODIUM
     Indication: GASTROOESOPHAGEAL REFLUX DISEASE
     Route: 065
     Dates: start: 2016
  24. PEPCID [Concomitant]
     Active Substance: FAMOTIDINE
  25. ASPIRIN. [Concomitant]
     Active Substance: ASPIRIN
  26. NOVOLOG [Concomitant]
     Active Substance: INSULIN ASPART
  27. AMOX [Concomitant]
     Active Substance: UNSPECIFIED INGREDIENT
  28. LANTUS [Concomitant]
     Active Substance: INSULIN GLARGINE
  29. FLUDROCORTISONE ACETATE. [Concomitant]
     Active Substance: FLUDROCORTISONE ACETATE
  30. ZYVOX [Concomitant]
     Active Substance: LINEZOLID
  31. PRILOSEC [Suspect]
     Active Substance: OMEPRAZOLE MAGNESIUM
     Indication: GASTROOESOPHAGEAL REFLUX DISEASE
     Route: 048
     Dates: start: 1995
  32. ZANTAC [Concomitant]
     Active Substance: RANITIDINE HYDROCHLORIDE
  33. FLORINEF ACETATE [Concomitant]
     Active Substance: FLUDROCORTISONE ACETATE

REACTIONS (4)
  - Renal failure [Not Recovered/Not Resolved]
  - Acute kidney injury [Unknown]
  - End stage renal disease [Unknown]
  - Chronic kidney disease [Unknown]

NARRATIVE: CASE EVENT DATE: 20050321
